FAERS Safety Report 6142043-6 (Version None)
Quarter: 2009Q1

REPORT INFORMATION
  Report Type: 
  Country: None (occurrence: None)
  Receive Date: 20090331
  Receipt Date: 20090331
  Transmission Date: 20090719
  Serious: No
  Sender: FDA-Public Use
  Company Number: None

PATIENT
  Age: 49 Year
  Sex: Male
  Weight: 95.2554 kg

DRUGS (1)
  1. LEVAQUIN [Suspect]
     Indication: DIVERTICULITIS
     Dosage: 1 TABLET DAILY PO
     Route: 048
     Dates: start: 20081103, end: 20081105

REACTIONS (9)
  - AGGRESSION [None]
  - BLOOD PRESSURE INCREASED [None]
  - CRYING [None]
  - FATIGUE [None]
  - FEELING ABNORMAL [None]
  - HEAD BANGING [None]
  - HEART RATE INCREASED [None]
  - RESTLESSNESS [None]
  - SCREAMING [None]
